FAERS Safety Report 9373610 (Version 1)
Quarter: 2013Q2

REPORT INFORMATION
  Report Type: Spontaneous
  Country: JP (occurrence: JP)
  Receive Date: 20130627
  Receipt Date: 20130627
  Transmission Date: 20140414
  Serious: Yes (Other)
  Sender: FDA-Public Use
  Company Number: JP-PFIZER INC-2013187997

PATIENT
  Sex: Female
  Weight: 46 kg

DRUGS (2)
  1. ZITHROMAC [Suspect]
     Indication: OROPHARYNGEAL PAIN
     Dosage: 250 MG, 2X/DAY
     Route: 048
     Dates: start: 20130610, end: 20130612
  2. KAMIKIHITOU [Suspect]
     Dosage: UNK

REACTIONS (5)
  - Hypoacusis [Unknown]
  - Activities of daily living impaired [Unknown]
  - Ear pain [Unknown]
  - Ear disorder [Unknown]
  - Tinnitus [Unknown]
